FAERS Safety Report 26073874 (Version 1)
Quarter: 2025Q4

REPORT INFORMATION
  Report Type: Spontaneous
  Country: EU (occurrence: EU)
  Receive Date: 20251121
  Receipt Date: 20251121
  Transmission Date: 20260118
  Serious: Yes (Other)
  Sender: ROCHE
  Company Number: EU-ROCHE-10000438553

PATIENT
  Age: 42 Year
  Sex: Male
  Weight: 95 kg

DRUGS (5)
  1. HEMLIBRA [Suspect]
     Active Substance: EMICIZUMAB-KXWH
     Indication: Factor VIII deficiency
     Dosage: INITIALLY 4 DOSES -3 MG/KG BODY WEIGHT 1 * PER WEEK (1.91 ML)
     Route: 058
     Dates: start: 20170209
  2. HEMLIBRA [Suspect]
     Active Substance: EMICIZUMAB-KXWH
     Dosage: STARTING FROM WEEK 5 -3 MG/KG BODY WEIGHT EVERY 2 WEEKS AND FROM WEEK 9 - DOSAGE AS ABOVE - DRUG SEL
     Route: 058
  3. HEMLIBRA [Suspect]
     Active Substance: EMICIZUMAB-KXWH
     Dosage: PATIENT VISITS TO THE HAEMATOLOGY OUTPATIENT CLINIC - FROM WEEK 9 ONWARDS, EVERY MONTH.
     Route: 058
  4. HEMLIBRA [Suspect]
     Active Substance: EMICIZUMAB-KXWH
     Dosage: FROM WEEK 33 ONWARDS, EVERY 2 MONTHS.
     Route: 058
  5. HEMLIBRA [Suspect]
     Active Substance: EMICIZUMAB-KXWH
     Dosage: WEEK 49 ONWARDS, EVERY 3 MONTHS
     Route: 058

REACTIONS (4)
  - Muscle haemorrhage [Unknown]
  - Haematuria [Unknown]
  - Spontaneous haemorrhage [Unknown]
  - Pneumonia [Unknown]
